FAERS Safety Report 9002316 (Version 1)
Quarter: 2013Q1

REPORT INFORMATION
  Report Type: Spontaneous
  Country: IT (occurrence: IT)
  Receive Date: 20130107
  Receipt Date: 20130107
  Transmission Date: 20140127
  Serious: Yes (Other)
  Sender: FDA-Public Use
  Company Number: IT-PFIZER INC-2013003062

PATIENT
  Sex: Female

DRUGS (1)
  1. MEDROL [Suspect]
     Indication: POLYMYALGIA RHEUMATICA
     Dosage: 16 MG, UNK
     Dates: start: 2007

REACTIONS (1)
  - Osteochondrosis [Unknown]
